FAERS Safety Report 13974486 (Version 2)
Quarter: 2017Q4

REPORT INFORMATION
  Report Type: Spontaneous
  Country: EE (occurrence: EE)
  Receive Date: 20170915
  Receipt Date: 20171023
  Transmission Date: 20180321
  Serious: Yes (Other)
  Sender: FDA-Public Use
  Company Number: EE-ROCHE-1991432

PATIENT
  Age: 16 Year
  Sex: Male

DRUGS (11)
  1. MABTHERA [Suspect]
     Active Substance: RITUXIMAB
     Dosage: 600 MG/DOSING 2 INFUSIONS - 2 WEEK APART
     Route: 042
     Dates: start: 20170614, end: 20170628
  2. ALENDRONIC ACID [Concomitant]
     Active Substance: ALENDRONIC ACID
     Route: 065
     Dates: start: 201212
  3. PLAQUENIL [Concomitant]
     Active Substance: HYDROXYCHLOROQUINE SULFATE
     Route: 065
     Dates: start: 201202
  4. MABTHERA [Suspect]
     Active Substance: RITUXIMAB
     Dosage: 600 MG/DOSING 2 INFUSIONS - 2 WEEK APART
     Route: 042
     Dates: start: 20161116, end: 20161130
  5. MABTHERA [Suspect]
     Active Substance: RITUXIMAB
     Indication: SYSTEMIC LUPUS ERYTHEMATOSUS
     Dosage: 500 MG/DOSING 2 INFUSIONS - 2 WEEK APART
     Route: 042
     Dates: start: 20140924, end: 20141008
  6. PREDNISOLON [Concomitant]
     Active Substance: PREDNISOLONE
     Dosage: EVERY MORNING. REGULARLY IN?DIFFERENT DOSES SINCE THE DIAGNOSIS
     Route: 065
  7. MABTHERA [Suspect]
     Active Substance: RITUXIMAB
     Dosage: 500 MG/DOSING 2 INFUSIONS - 2 WEEK APART
     Route: 042
     Dates: start: 20150406, end: 20150420
  8. MABTHERA [Suspect]
     Active Substance: RITUXIMAB
     Dosage: 560 - 590 MG/DOSING 2 INFUSIONS - 2 WEEK APART
     Route: 042
     Dates: start: 20151104, end: 20151118
  9. CELLCEPT [Concomitant]
     Active Substance: MYCOPHENOLATE MOFETIL\MYCOPHENOLATE MOFETIL HYDROCHLORIDE
     Dosage: 500 MG X 2
     Route: 065
     Dates: start: 201203
  10. MABTHERA [Suspect]
     Active Substance: RITUXIMAB
     Dosage: 590 MG/DOSING 2 INFUSIONS - 2 WEEK APART
     Route: 042
     Dates: start: 20160509, end: 20160524
  11. HJERTEMAGNYL [Concomitant]
     Active Substance: ASPIRIN\MAGNESIUM OXIDE
     Route: 065
     Dates: start: 201201

REACTIONS (3)
  - Intentional product use issue [Unknown]
  - Iridocyclitis [Not Recovered/Not Resolved]
  - Off label use [Unknown]

NARRATIVE: CASE EVENT DATE: 201707
